FAERS Safety Report 4829137-X (Version None)
Quarter: 2005Q4

REPORT INFORMATION
  Report Type: 
  Country: None (occurrence: None)
  Receive Date: 20051027
  Receipt Date: 20050601
  Transmission Date: 20060501
  Serious: Yes (Other)
  Sender: FDA-Public Use
  Company Number: HQWYE214603JUN05

PATIENT
  Age: 64 Year
  Sex: Female

DRUGS (5)
  1. PREMARIN [Suspect]
  2. CYCRIN [Suspect]
  3. MEDROXYPROGESTERONE [Suspect]
  4. PREMPRO [Suspect]
  5. PROVERA [Suspect]

REACTIONS (2)
  - BREAST CANCER [None]
  - BREAST CANCER IN SITU [None]
